FAERS Safety Report 16711510 (Version 3)
Quarter: 2020Q3

REPORT INFORMATION
  Report Type: Spontaneous
  Country: US (occurrence: US)
  Receive Date: 20190816
  Receipt Date: 20200707
  Transmission Date: 20201102
  Serious: No
  Sender: FDA-Public Use
  Company Number: US-SA-2019SA221208

PATIENT

DRUGS (1)
  1. DUPIXENT [Suspect]
     Active Substance: DUPILUMAB
     Indication: DERMATITIS ATOPIC
     Dosage: 300 MG, QOW
     Route: 058
     Dates: start: 20190602

REACTIONS (7)
  - White blood cell count increased [Not Recovered/Not Resolved]
  - Rash macular [Recovered/Resolved]
  - Eye swelling [Unknown]
  - Groin pain [Not Recovered/Not Resolved]
  - Swelling [Recovered/Resolved]
  - Gastric disorder [Unknown]
  - Ocular hyperaemia [Unknown]

NARRATIVE: CASE EVENT DATE: 2019
